FAERS Safety Report 25858822 (Version 1)
Quarter: 2025Q3

REPORT INFORMATION
  Report Type: Spontaneous
  Country: US (occurrence: US)
  Receive Date: 20250929
  Receipt Date: 20250929
  Transmission Date: 20251020
  Serious: No
  Sender: ROCHE
  Company Number: US-ROCHE-10000393644

PATIENT
  Age: 46 Year
  Sex: Female
  Weight: 56.7 kg

DRUGS (7)
  1. OCREVUS [Suspect]
     Active Substance: OCRELIZUMAB
     Indication: Relapsing-remitting multiple sclerosis
     Route: 042
     Dates: start: 20180218
  2. BACLOFEN [Suspect]
     Active Substance: BACLOFEN
     Indication: Muscle spasms
     Dosage: AS NEEDED
     Route: 048
  3. BACLOFEN [Suspect]
     Active Substance: BACLOFEN
     Indication: Muscle spasms
  4. TIZANIDINE [Suspect]
     Active Substance: TIZANIDINE
     Indication: Muscle spasms
     Route: 048
  5. TIZANIDINE [Suspect]
     Active Substance: TIZANIDINE
     Indication: Muscle spasms
  6. SYNTHROID [Concomitant]
     Active Substance: LEVOTHYROXINE SODIUM
     Indication: Hypothyroidism
     Dosage: ORAL
     Route: 048
  7. OZEMPIC [Concomitant]
     Active Substance: SEMAGLUTIDE
     Indication: Diabetes mellitus
     Dosage: DOSE: 0.5??UNDER THE SKIN
     Route: 058

REACTIONS (6)
  - Crohn^s disease [Not Recovered/Not Resolved]
  - Diarrhoea [Not Recovered/Not Resolved]
  - Abdominal pain [Not Recovered/Not Resolved]
  - Raynaud^s phenomenon [Not Recovered/Not Resolved]
  - Muscle spasms [Not Recovered/Not Resolved]
  - Muscle spasms [Not Recovered/Not Resolved]

NARRATIVE: CASE EVENT DATE: 20220101
